FAERS Safety Report 17500315 (Version 1)
Quarter: 2020Q1

REPORT INFORMATION
  Report Type: Spontaneous
  Country: CN (occurrence: CN)
  Receive Date: 20200305
  Receipt Date: 20200305
  Transmission Date: 20200409
  Serious: Yes (Hospitalization)
  Sender: FDA-Public Use
  Company Number: CN-BAXTER-2020BAX004911

PATIENT
  Age: 44 Year
  Sex: Female
  Weight: 56 kg

DRUGS (12)
  1. ENDOXAN [Suspect]
     Active Substance: CYCLOPHOSPHAMIDE
     Dosage: ENDOXAN + 0.9% SODIUM CHLORIDE, SECOND CYCLE
     Route: 041
     Dates: start: 20200204, end: 20200204
  2. ENDOXAN [Suspect]
     Active Substance: CYCLOPHOSPHAMIDE
     Dosage: ENDOXAN + 0.9% SODIUM CHLORIDE, THIRD CYCLE, DOSE RE-INTRODUCED
     Route: 041
     Dates: start: 20200225
  3. 0.9% SODIUM CHLORIDE INJECTION [Suspect]
     Active Substance: SODIUM CHLORIDE
     Dosage: ENDOXAN + 0.9% SODIUM CHLORIDE, THIRD CYCLE, DOSE RE-INTRODUCED
     Route: 041
     Dates: start: 20200225
  4. ENDOXAN [Suspect]
     Active Substance: CYCLOPHOSPHAMIDE
     Indication: BREAST CANCER FEMALE
     Dosage: ENDOXAN + 0.9% SODIUM CHLORIDE, FIRST CYCLE
     Route: 041
  5. DOXORUBICIN HYDROCHLORIDE. [Suspect]
     Active Substance: DOXORUBICIN HYDROCHLORIDE
     Dosage: DOXORUBICIN + STERILE WATER FOR INJECTION, SECOND CYCLE
     Route: 041
     Dates: start: 20200204, end: 20200204
  6. 0.9% SODIUM CHLORIDE INJECTION [Suspect]
     Active Substance: SODIUM CHLORIDE
     Indication: MEDICATION DILUTION
     Dosage: ENDOXAN + 0.9% SODIUM CHLORIDE, FIRST CYCLE
     Route: 041
  7. 0.9% SODIUM CHLORIDE INJECTION [Suspect]
     Active Substance: SODIUM CHLORIDE
     Dosage: ENDOXAN + 0.9% SODIUM CHLORIDE, SECOND CYCLE
     Route: 041
     Dates: start: 20200204, end: 20200204
  8. DOXORUBICIN HYDROCHLORIDE. [Suspect]
     Active Substance: DOXORUBICIN HYDROCHLORIDE
     Indication: BREAST CANCER FEMALE
     Dosage: DOXORUBICIN + STERILE WATER FOR INJECTION, FIRST CYCLE
     Route: 041
  9. DOXORUBICIN HYDROCHLORIDE. [Suspect]
     Active Substance: DOXORUBICIN HYDROCHLORIDE
     Dosage: DOXORUBICIN + STERILE WATER FOR INJECTION, THIRD CYCLE, DOSE RE-INTRODUCED
     Route: 041
     Dates: start: 20200225
  10. STERILE WATER FOR INJECTION [Suspect]
     Active Substance: WATER
     Indication: MEDICATION DILUTION
     Dosage: DOXORUBICIN + STERILE WATER FOR INJECTION, FIRST CYCLE
     Route: 041
  11. STERILE WATER FOR INJECTION [Suspect]
     Active Substance: WATER
     Dosage: DOXORUBICIN + STERILE WATER FOR INJECTION, SECOND CYCLE
     Route: 041
     Dates: start: 20200204, end: 20200204
  12. STERILE WATER FOR INJECTION [Suspect]
     Active Substance: WATER
     Dosage: DOXORUBICIN + STERILE WATER FOR INJECTION, THIRD CYCLE, DOSE RE-INTRODUCED
     Route: 041
     Dates: start: 20200225

REACTIONS (2)
  - White blood cell count decreased [Recovered/Resolved]
  - Neutrophil count decreased [Recovered/Resolved]

NARRATIVE: CASE EVENT DATE: 20200217
